FAERS Safety Report 4755553-0 (Version None)
Quarter: 2005Q3

REPORT INFORMATION
  Report Type: 
  Country: None (occurrence: None)
  Receive Date: 20050830
  Receipt Date: 20050513
  Transmission Date: 20060218
  Serious: Yes (Hospitalization)
  Sender: FDA-Public Use
  Company Number: US-BRISTOL-MYERS SQUIBB COMPANY-12968392

PATIENT
  Age: 10 Year
  Sex: Female
  Weight: 28 kg

DRUGS (3)
  1. ABILIFY [Suspect]
     Dates: start: 20050301, end: 20050505
  2. PROZAC [Concomitant]
  3. ZOLOFT [Concomitant]
     Dates: start: 20050419, end: 20050505

REACTIONS (3)
  - FACE OEDEMA [None]
  - NAUSEA [None]
  - OEDEMA PERIPHERAL [None]
